FAERS Safety Report 18154551 (Version 3)
Quarter: 2020Q4

REPORT INFORMATION
  Report Type: Spontaneous
  Country: CA (occurrence: CA)
  Receive Date: 20200817
  Receipt Date: 20201106
  Transmission Date: 20210113
  Serious: Yes (Hospitalization, Other)
  Sender: FDA-Public Use
  Company Number: CA-CELLTRION INC.-2020CA021833

PATIENT

DRUGS (6)
  1. IMURAN [Concomitant]
     Active Substance: AZATHIOPRINE
     Dosage: UNK
     Route: 065
  2. INFLECTRA [Suspect]
     Active Substance: INFLIXIMAB-DYYB
     Indication: CROHN^S DISEASE
     Dosage: 500 MG,EVERY 4 WEEKS
     Route: 042
     Dates: start: 20200710, end: 20200710
  3. INFLECTRA [Suspect]
     Active Substance: INFLIXIMAB-DYYB
     Dosage: 500 MG,EVERY 4 WEEKS
     Route: 042
     Dates: start: 20200807
  4. INFLECTRA [Suspect]
     Active Substance: INFLIXIMAB-DYYB
     Dosage: 500 MG,EVERY 4 WEEKS
     Route: 042
     Dates: start: 20200903
  5. INFLECTRA [Suspect]
     Active Substance: INFLIXIMAB-DYYB
     Dosage: 500 MG,EVERY 4 WEEKS
     Route: 042
     Dates: start: 20200710
  6. INFLECTRA [Suspect]
     Active Substance: INFLIXIMAB-DYYB
     Dosage: 500 MG,EVERY 4 WEEKS
     Route: 042
     Dates: start: 20201001, end: 20201001

REACTIONS (4)
  - Off label use [Unknown]
  - Intestinal obstruction [Recovered/Resolved]
  - Product use issue [Unknown]
  - Arthralgia [Unknown]

NARRATIVE: CASE EVENT DATE: 20200807
